FAERS Safety Report 21649176 (Version 4)
Quarter: 2023Q1

REPORT INFORMATION
  Report Type: Report from Study
  Country: BR (occurrence: BR)
  Receive Date: 20221128
  Receipt Date: 20230106
  Transmission Date: 20230417
  Serious: Yes (Other)
  Sender: FDA-Public Use
  Company Number: BR-002147023-NVSC2022BR265363

PATIENT
  Sex: Female
  Weight: 78 kg

DRUGS (2)
  1. AMLODIPINE\VALSARTAN [Suspect]
     Active Substance: AMLODIPINE\VALSARTAN
     Indication: Hypertension
     Dosage: 1 DOSAGE FORM, QD, (STARTED ABOUT 10 YEAR AGO, 320+5 UNIT NOT REPORTED)
     Route: 048
  2. OMEPRAZOLE [Concomitant]
     Active Substance: OMEPRAZOLE
     Indication: Hiatus hernia
     Dosage: 1 DOSAGE FORM, QD, STARTED MANY YEARS AGO
     Route: 048

REACTIONS (4)
  - Retinal detachment [Unknown]
  - Cataract [Unknown]
  - Blindness unilateral [Unknown]
  - Nervousness [Unknown]
